FAERS Safety Report 20354436 (Version 2)
Quarter: 2022Q2

REPORT INFORMATION
  Report Type: Spontaneous
  Country: US (occurrence: US)
  Receive Date: 20220120
  Receipt Date: 20220621
  Transmission Date: 20220721
  Serious: Yes (Hospitalization, Other)
  Sender: FDA-Public Use
  Company Number: US-drreddys-SPO/USA/22/0146042

PATIENT
  Age: 54 Year
  Sex: Female

DRUGS (2)
  1. ZOLPIDEM [Suspect]
     Active Substance: ZOLPIDEM TARTRATE
     Indication: Insomnia
     Dosage: PER NIGHT
  2. ZOLPIDEM [Suspect]
     Active Substance: ZOLPIDEM TARTRATE
     Dosage: PER NIGHT

REACTIONS (5)
  - Drug withdrawal convulsions [Recovered/Resolved]
  - Drug dependence [Recovered/Resolved]
  - Incorrect dose administered [Recovered/Resolved]
  - Self-medication [Recovered/Resolved]
  - Drug abuse [Recovered/Resolved]
